FAERS Safety Report 10786455 (Version 2)
Quarter: 2015Q1

REPORT INFORMATION
  Report Type: Spontaneous
  Country: US (occurrence: US)
  Receive Date: 20150211
  Receipt Date: 20150303
  Transmission Date: 20150721
  Serious: Yes (Other)
  Sender: FDA-Public Use
  Company Number: US-RECKITT BENCKISER PHARMACEUTICAL, INC-RB-075554-2015

PATIENT
  Age: 24 Year
  Sex: Female

DRUGS (3)
  1. SUBOXONE [Suspect]
     Active Substance: BUPRENORPHINE HYDROCHLORIDE\NALOXONE HYDROCHLORIDE
     Indication: DRUG DEPENDENCE
     Dosage: UNK, DAILY
     Route: 060
     Dates: start: 201412, end: 20141231
  2. ALCOHOL. [Suspect]
     Active Substance: ALCOHOL
     Indication: PRODUCT USED FOR UNKNOWN INDICATION
     Dosage: UNK
     Route: 048
  3. ALCOHOL. [Suspect]
     Active Substance: ALCOHOL
     Dosage: ONE ENTIRE BOTTLE
     Route: 048
     Dates: start: 20141231

REACTIONS (5)
  - Substance abuse [Recovered/Resolved]
  - Loss of consciousness [Recovered/Resolved]
  - Wrong technique in drug usage process [Recovered/Resolved]
  - Alcohol abuse [Recovered/Resolved]
  - Victim of sexual abuse [Recovered/Resolved]

NARRATIVE: CASE EVENT DATE: 201412
